FAERS Safety Report 19493119 (Version 3)
Quarter: 2021Q3

REPORT INFORMATION
  Report Type: Spontaneous
  Country: JP (occurrence: JP)
  Receive Date: 20210705
  Receipt Date: 20210730
  Transmission Date: 20211014
  Serious: Yes (Other)
  Sender: FDA-Public Use
  Company Number: NVSJ2021JP005064

PATIENT
  Age: 86 Year
  Sex: Male
  Weight: 57 kg

DRUGS (2)
  1. BEOVU [Suspect]
     Active Substance: BROLUCIZUMAB-DBLL
     Indication: NEOVASCULAR AGE-RELATED MACULAR DEGENERATION
     Dosage: 6 MG
     Route: 031
     Dates: start: 20200817, end: 20200817
  2. BEOVU [Suspect]
     Active Substance: BROLUCIZUMAB-DBLL
     Dosage: 6 MG
     Route: 031
     Dates: start: 20201014, end: 20201014

REACTIONS (7)
  - Retinal artery occlusion [Recovering/Resolving]
  - Condition aggravated [Unknown]
  - Concomitant disease aggravated [Unknown]
  - Retinal perivascular sheathing [Unknown]
  - Neovascular age-related macular degeneration [Unknown]
  - Visual acuity reduced [Recovering/Resolving]
  - Hypoaesthesia [Unknown]

NARRATIVE: CASE EVENT DATE: 2020
